FAERS Safety Report 9765409 (Version 1)
Quarter: 2013Q4

REPORT INFORMATION
  Report Type: Spontaneous
  Country: US (occurrence: US)
  Receive Date: 20131217
  Receipt Date: 20131217
  Transmission Date: 20140711
  Serious: No
  Sender: FDA-Public Use
  Company Number: US-GLAXOSMITHKLINE-A1007164A

PATIENT
  Sex: Female
  Weight: 77.3 kg

DRUGS (12)
  1. VOTRIENT [Suspect]
     Indication: PRODUCT USED FOR UNKNOWN INDICATION
     Dosage: 800MG PER DAY
     Route: 048
     Dates: start: 201209
  2. OXYGEN [Concomitant]
  3. LEVOTHYROXIN [Concomitant]
  4. DOCUSATE SODIUM [Concomitant]
  5. FLUOXETINE [Concomitant]
  6. OXYCODONE + ACETAMINOPHEN [Concomitant]
  7. ONDANSETRON [Concomitant]
  8. LORAZEPAM [Concomitant]
  9. PROMETHAZINE [Concomitant]
  10. FENTANYL [Concomitant]
  11. SODIUM CHLORIDE [Concomitant]
     Route: 055
  12. SENNA [Concomitant]

REACTIONS (15)
  - Nasal dryness [Not Recovered/Not Resolved]
  - Dry skin [Not Recovered/Not Resolved]
  - Dry throat [Not Recovered/Not Resolved]
  - Dry mouth [Unknown]
  - Skin exfoliation [Unknown]
  - Oropharyngeal pain [Unknown]
  - Dysphonia [Not Recovered/Not Resolved]
  - Dysgeusia [Unknown]
  - Parosmia [Unknown]
  - Decreased appetite [Unknown]
  - Weight decreased [Unknown]
  - Vomiting [Not Recovered/Not Resolved]
  - Nausea [Unknown]
  - Constipation [Unknown]
  - Anaemia [Unknown]
